FAERS Safety Report 9246827 (Version 4)
Quarter: 2013Q4

REPORT INFORMATION
  Report Type: Spontaneous
  Country: US (occurrence: US)
  Receive Date: 20130422
  Receipt Date: 20131011
  Transmission Date: 20140711
  Serious: Yes (Other)
  Sender: FDA-Public Use
  Company Number: US-PFIZER INC-2013119783

PATIENT
  Age: 53 Year
  Sex: Female

DRUGS (3)
  1. DIMETAPP COLD AND ALLERGY [Suspect]
     Indication: NASOPHARYNGITIS
     Dosage: UNK, AS NEEDED
  2. DIMETAPP COLD AND ALLERGY [Suspect]
     Indication: PNEUMONIA
  3. DIMETAPP COLD AND ALLERGY [Suspect]
     Indication: PNEUMONITIS

REACTIONS (3)
  - Poor quality drug administered [Unknown]
  - Hypertension [Unknown]
  - Product packaging issue [Unknown]
